FAERS Safety Report 10090462 (Version 1)
Quarter: 2014Q2

REPORT INFORMATION
  Report Type: Spontaneous
  Country: SG (occurrence: SG)
  Receive Date: 20140421
  Receipt Date: 20140421
  Transmission Date: 20141212
  Serious: Yes (Other)
  Sender: FDA-Public Use
  Company Number: SG-AMGEN INC.-SGPSP2014028480

PATIENT
  Age: 46 Year
  Sex: Female

DRUGS (3)
  1. NEUPOGEN [Suspect]
     Indication: CHEMOTHERAPY
     Dosage: 0.3 UNK, 1 IN 1 D FOR 3 DAYS
     Route: 058
     Dates: start: 20140320, end: 20140321
  2. TAXOTERE [Concomitant]
     Indication: BREAST CANCER
     Dosage: 120 MG, 1 IN 3 WK
     Route: 042
     Dates: start: 20140317
  3. CYCLOPHOSPHAMIDE [Concomitant]
     Indication: BREAST CANCER
     Dosage: 1000 MG, 1 IN 3 WK
     Route: 042
     Dates: start: 20140317

REACTIONS (3)
  - Chest discomfort [Not Recovered/Not Resolved]
  - Pain [Not Recovered/Not Resolved]
  - Bone pain [Unknown]
